FAERS Safety Report 8358654 (Version 4)
Quarter: 2018Q4

REPORT INFORMATION
  Report Type: Spontaneous
  Country: JP (occurrence: JP)
  Receive Date: 20120127
  Receipt Date: 20181005
  Transmission Date: 20190205
  Serious: Yes (Death, Other)
  Sender: FDA-Public Use
  Company Number: PHHY2012JP006622

PATIENT
  Age: 81 Year
  Sex: Male

DRUGS (4)
  1. EXELON PATCH [Suspect]
     Active Substance: RIVASTIGMINE
     Dosage: 9 MG, QD
     Route: 062
  2. EXELON PATCH [Suspect]
     Active Substance: RIVASTIGMINE
     Indication: DEMENTIA ALZHEIMER^S TYPE
     Dosage: 4.5 MG, QD
     Route: 062
     Dates: start: 20110914
  3. EXELON PATCH [Suspect]
     Active Substance: RIVASTIGMINE
     Route: 062
  4. EXELON PATCH [Suspect]
     Active Substance: RIVASTIGMINE
     Dosage: 18 MG, QD
     Route: 062
     Dates: end: 20111222

REACTIONS (3)
  - Asthenia [Unknown]
  - Respiratory failure [Fatal]
  - Pneumonia aspiration [Unknown]

NARRATIVE: CASE EVENT DATE: 2011
